FAERS Safety Report 6074975-1 (Version None)
Quarter: 2009Q1

REPORT INFORMATION
  Report Type: 
  Country: None (occurrence: None)
  Receive Date: 20090212
  Receipt Date: 20090112
  Transmission Date: 20090719
  Serious: No
  Sender: FDA-Public Use
  Company Number: US-BAYER-200911029NA

PATIENT
  Age: 18 Year
  Sex: Female
  Weight: 59 kg

DRUGS (1)
  1. OCELLA [Suspect]
     Indication: ABDOMINAL PAIN LOWER
     Route: 048
     Dates: start: 20081003, end: 20090103

REACTIONS (7)
  - ABDOMINAL DISTENSION [None]
  - DEPRESSED MOOD [None]
  - IRRITABILITY [None]
  - MOOD SWINGS [None]
  - OFF LABEL USE [None]
  - POLLAKIURIA [None]
  - WEIGHT INCREASED [None]
